FAERS Safety Report 15158261 (Version 1)
Quarter: 2018Q3

REPORT INFORMATION
  Report Type: Spontaneous
  Country: US (occurrence: US)
  Receive Date: 20180620
  Receipt Date: 20180620
  Transmission Date: 20181010
  Serious: No
  Sender: FDA-Public Use
  Company Number: None

PATIENT
  Age: 71 Year
  Sex: Female

DRUGS (1)
  1. HARVONI [Suspect]
     Active Substance: LEDIPASVIR\SOFOSBUVIR
     Indication: CHRONIC HEPATITIS C
     Route: 048
     Dates: start: 20180530

REACTIONS (5)
  - Headache [None]
  - Fatigue [None]
  - Vision blurred [None]
  - Dizziness [None]
  - Cataract operation [None]

NARRATIVE: CASE EVENT DATE: 20180530
